FAERS Safety Report 4793785-6 (Version None)
Quarter: 2005Q4

REPORT INFORMATION
  Report Type: 
  Country: None (occurrence: None)
  Receive Date: 20051011
  Receipt Date: 20050725
  Transmission Date: 20060501
  Serious: Yes (Hospitalization)
  Sender: FDA-Public Use
  Company Number: 200516698GDDC

PATIENT
  Age: 70 Year
  Sex: Female
  Weight: 63.9 kg

DRUGS (14)
  1. TAXOTERE [Suspect]
     Indication: NON-SMALL CELL LUNG CANCER
     Route: 042
     Dates: start: 20050418, end: 20050620
  2. GEMZAR [Suspect]
     Indication: NON-SMALL CELL LUNG CANCER
     Route: 042
     Dates: start: 20050418, end: 20050606
  3. CARBOPLATIN [Suspect]
     Indication: NON-SMALL CELL LUNG CANCER
     Dosage: DOSE: AUC 1.5
     Route: 042
     Dates: start: 20050620, end: 20050620
  4. RADIATION [Suspect]
     Indication: NON-SMALL CELL LUNG CANCER
     Dosage: DOSE: 180 CGY (1080 CGY TOTAL)
     Dates: start: 20050620, end: 20050630
  5. ATENOLOL [Concomitant]
     Indication: HYPERTENSION
     Dates: start: 20000101
  6. NEXIUM [Concomitant]
     Indication: GASTROOESOPHAGEAL REFLUX DISEASE
     Dates: start: 20000101
  7. COUMADIN [Concomitant]
     Indication: PROPHYLAXIS
     Route: 048
     Dates: start: 20050401
  8. DEXAMETHASONE [Concomitant]
     Indication: PROPHYLAXIS
     Dates: start: 20050501
  9. ANTIEMETICS AND ANTINAUSEANTS [Concomitant]
     Indication: NAUSEA
     Dates: start: 20050501
  10. QUESTRAN [Concomitant]
     Indication: DIARRHOEA
     Dosage: DOSE: 1 PACK
     Dates: start: 20050501
  11. LASIX [Concomitant]
     Indication: OEDEMA
     Dates: start: 20050603
  12. POTASSIUM CHLORIDE [Concomitant]
     Dates: start: 20050603
  13. COMPAZINE [Concomitant]
     Indication: NAUSEA
     Dates: start: 20050418, end: 20050502
  14. ZOFRAN [Concomitant]
     Indication: NAUSEA
     Dates: start: 20050502

REACTIONS (6)
  - CANDIDIASIS [None]
  - CHRONIC OBSTRUCTIVE PULMONARY DISEASE [None]
  - HERPES SIMPLEX [None]
  - NAUSEA [None]
  - OEDEMA PERIPHERAL [None]
  - URINARY TRACT INFECTION [None]
